FAERS Safety Report 4718383-1 (Version None)
Quarter: 2005Q3

REPORT INFORMATION
  Report Type: 
  Country: None (occurrence: None)
  Receive Date: 20050720
  Receipt Date: 20050301
  Transmission Date: 20060218
  Serious: Yes (Hospitalization)
  Sender: FDA-Public Use
  Company Number: PHEH2005US02654

PATIENT
  Age: 65 Year
  Sex: Female

DRUGS (7)
  1. ENABLEX [Suspect]
     Indication: HYPERTONIC BLADDER
     Dosage: 7.5 MG, QD
     Dates: start: 20050224, end: 20050228
  2. METFORMIN [Concomitant]
     Indication: DIABETES MELLITUS
     Dosage: 1000 MG, BID
  3. GLYBURIDE [Concomitant]
     Dosage: 5 MG, BID
  4. SYNTHROID [Concomitant]
     Dosage: 75 UG, QD
  5. LIPITOR [Concomitant]
     Indication: HYPERLIPIDAEMIA
     Dosage: 20 MG, QD
  6. ASPIRIN [Concomitant]
  7. XANAX [Concomitant]
     Indication: ANXIETY
     Dosage: 0.25 MG, BID

REACTIONS (5)
  - CARDIAC FAILURE CONGESTIVE [None]
  - CARDIAC VALVE DISEASE [None]
  - EJECTION FRACTION DECREASED [None]
  - ENDOCARDITIS [None]
  - VENTRICULAR HYPERTROPHY [None]
